FAERS Safety Report 23608873 (Version 1)
Quarter: 2024Q1

REPORT INFORMATION
  Report Type: Other
  Country: CN (occurrence: CN)
  Receive Date: 20240308
  Receipt Date: 20240308
  Transmission Date: 20240410
  Serious: Yes (Hospitalization)
  Sender: FDA-Public Use
  Company Number: CN-ALVOGEN-2024093147

PATIENT
  Age: 15 Year
  Sex: Male

DRUGS (2)
  1. SERTRALINE [Suspect]
     Active Substance: SERTRALINE HYDROCHLORIDE
     Indication: Depression
     Dosage: PAST 1 YEAR, HAD BEEN PRESCRIBED SERTRALINE 100 MG PER DAY
  2. SERTRALINE [Suspect]
     Active Substance: SERTRALINE HYDROCHLORIDE
     Indication: Depression
     Dosage: OVERDOSE OF SERTRALINE

REACTIONS (3)
  - Suicide attempt [Unknown]
  - Pancreatitis acute [Recovered/Resolved]
  - Intentional overdose [Unknown]
